FAERS Safety Report 20922913 (Version 4)
Quarter: 2022Q3

REPORT INFORMATION
  Report Type: Spontaneous
  Country: ES (occurrence: ES)
  Receive Date: 20220607
  Receipt Date: 20220727
  Transmission Date: 20221026
  Serious: Yes (Other)
  Sender: FDA-Public Use
  Company Number: ES-VIIV HEALTHCARE LIMITED-ES2022GSK078393

PATIENT
  Age: 41 Year
  Sex: Male

DRUGS (20)
  1. LAMIVUDINE [Suspect]
     Active Substance: LAMIVUDINE
     Indication: HIV infection
     Dosage: UNK
     Route: 065
     Dates: start: 200501
  2. LAMIVUDINE [Suspect]
     Active Substance: LAMIVUDINE
     Dosage: UNK
     Route: 065
  3. NEVIRAPINE [Suspect]
     Active Substance: NEVIRAPINE
     Indication: HIV infection
     Dosage: UNK
     Route: 065
     Dates: start: 200501
  4. TENOFOVIR DISOPROXIL [Suspect]
     Active Substance: TENOFOVIR DISOPROXIL
     Indication: HIV infection
     Dosage: UNK
     Route: 065
     Dates: start: 200501
  5. ZIDOVUDINE [Suspect]
     Active Substance: ZIDOVUDINE
     Indication: HIV infection
     Dosage: UNK
     Route: 065
     Dates: start: 1995
  6. ABACAVIR [Suspect]
     Active Substance: ABACAVIR
     Indication: HIV infection
     Dosage: UNK
     Route: 065
  7. ATAZANAVIR [Suspect]
     Active Substance: ATAZANAVIR
     Indication: HIV infection
     Dosage: UNK
     Route: 065
     Dates: start: 200501
  8. DIDANOSINE [Suspect]
     Active Substance: DIDANOSINE
     Indication: HIV infection
     Dosage: UNK
     Route: 065
  9. DIDANOSINE [Suspect]
     Active Substance: DIDANOSINE
     Dosage: UNK
     Route: 065
     Dates: start: 1995
  10. DARUNAVIR\RITONAVIR [Suspect]
     Active Substance: DARUNAVIR\RITONAVIR
     Indication: HIV infection
     Dosage: UNK
     Route: 065
  11. DOLUTEGRAVIR [Suspect]
     Active Substance: DOLUTEGRAVIR
     Indication: HIV infection
     Dosage: UNK
     Route: 065
     Dates: start: 201501
  12. EFAVIRENZ [Suspect]
     Active Substance: EFAVIRENZ
     Indication: HIV infection
     Dosage: UNK
     Route: 065
     Dates: start: 200501
  13. EFAVIRENZ [Suspect]
     Active Substance: EFAVIRENZ
     Dosage: UNK
     Route: 065
  14. ETRAVIRINE [Suspect]
     Active Substance: ETRAVIRINE
     Indication: HIV infection
     Dosage: UNK
     Route: 065
  15. LOPINAVIR\RITONAVIR [Suspect]
     Active Substance: LOPINAVIR\RITONAVIR
     Indication: HIV infection
     Dosage: UNK
     Route: 065
     Dates: end: 200501
  16. INDINAVIR [Suspect]
     Active Substance: INDINAVIR
     Indication: HIV infection
     Dosage: UNK
     Route: 065
  17. RALTEGRAVIR [Suspect]
     Active Substance: RALTEGRAVIR
     Indication: HIV infection
     Dosage: UNK
     Route: 065
     Dates: start: 200812, end: 201501
  18. RITONAVIR\TIPRANAVIR [Suspect]
     Active Substance: RITONAVIR\TIPRANAVIR
     Indication: HIV infection
     Dosage: UNK
     Route: 065
     Dates: start: 201501, end: 201501
  19. ZIDOVUDINE [Suspect]
     Active Substance: ZIDOVUDINE
     Indication: HIV infection
     Dosage: UNK
     Route: 065
     Dates: start: 1995
  20. ZIDOVUDINE [Suspect]
     Active Substance: ZIDOVUDINE
     Dosage: UNK
     Route: 065

REACTIONS (7)
  - Progressive multifocal leukoencephalopathy [Unknown]
  - Acquired immunodeficiency syndrome [Unknown]
  - Pathogen resistance [Unknown]
  - Virologic failure [Unknown]
  - Multiple-drug resistance [Unknown]
  - Therapy non-responder [Unknown]
  - Viral mutation identified [Unknown]
